FAERS Safety Report 4464826-0 (Version None)
Quarter: 2004Q4

REPORT INFORMATION
  Report Type: 
  Country: None (occurrence: None)
  Receive Date: 20041004
  Receipt Date: 20031010
  Transmission Date: 20050328
  Serious: Yes (Hospitalization)
  Sender: FDA-Public Use
  Company Number: US-GLAXOSMITHKLINE-A0429811A

PATIENT
  Age: 73 Year
  Sex: Male

DRUGS (7)
  1. COREG [Suspect]
     Indication: HYPERTENSION
     Dosage: 25MG THREE TIMES PER DAY
     Route: 048
  2. VASOTEC [Concomitant]
  3. ALLOPURINOL [Concomitant]
  4. LIPITOR [Concomitant]
  5. ECOTRIN [Concomitant]
  6. NEXIUM [Concomitant]
  7. PLAVIX [Concomitant]

REACTIONS (5)
  - ANGIOPATHY [None]
  - ASTHENIA [None]
  - BLOOD PRESSURE DECREASED [None]
  - LOSS OF CONSCIOUSNESS [None]
  - NAUSEA [None]
